FAERS Safety Report 22048334 (Version 1)
Quarter: 2023Q1

REPORT INFORMATION
  Report Type: Spontaneous
  Country: FR (occurrence: FR)
  Receive Date: 20230301
  Receipt Date: 20230301
  Transmission Date: 20230418
  Serious: Yes (Other)
  Sender: FDA-Public Use
  Company Number: FR-Accord-302299

PATIENT
  Age: 83 Year
  Sex: Male

DRUGS (4)
  1. GEMCITABINE [Suspect]
     Active Substance: GEMCITABINE
     Indication: High-grade B-cell lymphoma
     Route: 065
  2. OXALIPLATIN [Suspect]
     Active Substance: OXALIPLATIN
     Indication: High-grade B-cell lymphoma
     Route: 065
  3. LENALIDOMIDE [Suspect]
     Active Substance: LENALIDOMIDE
     Indication: High-grade B-cell lymphoma
     Route: 065
  4. TAFASITAMAB [Suspect]
     Active Substance: TAFASITAMAB
     Indication: High-grade B-cell lymphoma
     Route: 065

REACTIONS (4)
  - High-grade B-cell lymphoma [Unknown]
  - Disease progression [Unknown]
  - Lymphadenopathy [Unknown]
  - Testicular disorder [Unknown]
